FAERS Safety Report 6803103-7 (Version None)
Quarter: 2010Q2

REPORT INFORMATION
  Report Type: 
  Country: None (occurrence: None)
  Receive Date: 20100628
  Receipt Date: 20100617
  Transmission Date: 20101027
  Serious: Yes (Hospitalization)
  Sender: FDA-Public Use
  Company Number: A0802620A

PATIENT
  Age: 73 Year
  Sex: Male
  Weight: 97.7 kg

DRUGS (10)
  1. AVANDIA [Suspect]
     Indication: TYPE 2 DIABETES MELLITUS
     Dosage: 8MG PER DAY
     Route: 048
     Dates: start: 20000101, end: 20080101
  2. METFORMIN HCL [Concomitant]
  3. VASOTEC [Concomitant]
  4. LANOXIN [Concomitant]
  5. ENALAPRIL MALEATE [Concomitant]
  6. INSULIN [Concomitant]
  7. ZOCOR [Concomitant]
  8. CELEBREX [Concomitant]
  9. GLIPIZIDE [Concomitant]
  10. DIGITEK [Concomitant]

REACTIONS (9)
  - BALANCE DISORDER [None]
  - BRAIN INJURY [None]
  - CAROTID ARTERY STENOSIS [None]
  - CEREBELLAR ISCHAEMIA [None]
  - CEREBRAL ARTERY STENOSIS [None]
  - CEREBROVASCULAR ACCIDENT [None]
  - GAIT DISTURBANCE [None]
  - MYOCARDIAL INFARCTION [None]
  - VISUAL IMPAIRMENT [None]
